FAERS Safety Report 6305472-3 (Version None)
Quarter: 2009Q3

REPORT INFORMATION
  Report Type: 
  Country: None (occurrence: None)
  Receive Date: 20090811
  Receipt Date: 20090807
  Transmission Date: 20100115
  Serious: Yes (Death, Hospitalization, Other)
  Sender: FDA-Public Use
  Company Number: PHHY2009BR20896

PATIENT
  Sex: Male

DRUGS (3)
  1. EXELON [Suspect]
     Indication: DEMENTIA ALZHEIMER'S TYPE
     Dosage: 1.5 MG, 2 CAPSULES DAILY
     Route: 048
     Dates: start: 20060101
  2. EXELON [Suspect]
     Dosage: 3 MG, 2 CAPSULES DAILY
     Route: 048
  3. EXELON [Suspect]
     Dosage: 4.5 MG, 2 CAPSULES DAILY
     Route: 048

REACTIONS (7)
  - COMA [None]
  - DEMENTIA ALZHEIMER'S TYPE [None]
  - FEEDING DISORDER [None]
  - MOVEMENT DISORDER [None]
  - MULTI-ORGAN FAILURE [None]
  - PNEUMONIA [None]
  - RESPIRATORY ARREST [None]
